FAERS Safety Report 25090757 (Version 1)
Quarter: 2025Q1

REPORT INFORMATION
  Report Type: Report from Study
  Country: US (occurrence: US)
  Receive Date: 20250318
  Receipt Date: 20250318
  Transmission Date: 20250409
  Serious: Yes (Other)
  Sender: ABBVIE
  Company Number: US-ABBVIE-6181557

PATIENT
  Age: 85 Year
  Sex: Female

DRUGS (1)
  1. SYNTHROID [Suspect]
     Active Substance: LEVOTHYROXINE SODIUM
     Indication: Product used for unknown indication
     Route: 048

REACTIONS (7)
  - Aortic occlusion [Unknown]
  - Calcinosis [Unknown]
  - Endocrine ophthalmopathy [Unknown]
  - Headache [Unknown]
  - Obstruction [Unknown]
  - Anxiety [Unknown]
  - Neck pain [Unknown]

NARRATIVE: CASE EVENT DATE: 20250310
